FAERS Safety Report 10531409 (Version 1)
Quarter: 2014Q4

REPORT INFORMATION
  Report Type: Spontaneous
  Country: FR (occurrence: FR)
  Receive Date: 20141021
  Receipt Date: 20141021
  Transmission Date: 20150529
  Serious: Yes (Other)
  Sender: FDA-Public Use
  Company Number: FR-PFIZER INC-2014285616

PATIENT
  Age: 73 Year
  Sex: Female

DRUGS (1)
  1. ALPRESS [Suspect]
     Active Substance: PRAZOSIN
     Dosage: 5 MG, 1X/DAY

REACTIONS (1)
  - Cerebrovascular accident [Unknown]
